FAERS Safety Report 21131825 (Version 2)
Quarter: 2022Q3

REPORT INFORMATION
  Report Type: Spontaneous
  Country: US (occurrence: US)
  Receive Date: 20220726
  Receipt Date: 20220928
  Transmission Date: 20221027
  Serious: Yes (Other)
  Sender: FDA-Public Use
  Company Number: US-BAYER-2022A099939

PATIENT
  Age: 17 Year
  Sex: Male

DRUGS (4)
  1. KOGENATE FS [Suspect]
     Active Substance: ANTIHEMOPHILIC FACTOR, HUMAN RECOMBINANT
     Indication: Factor VIII deficiency
     Dosage: 7000 IU, BIW; 7000 UNITS (6300-7700) EVERY TUESDAY AND THURSDAY
     Route: 042
     Dates: start: 20211212
  2. KOGENATE FS [Suspect]
     Active Substance: ANTIHEMOPHILIC FACTOR, HUMAN RECOMBINANT
     Indication: Factor VIII deficiency
     Dosage: 9000 IU, OW; 9000 UNITS (8100-9900) ON SATURDAYS BY SLOW INTRAVENOUS PUSH FOR PROPHYLAXIS
     Route: 042
     Dates: start: 20211212
  3. KOGENATE FS [Suspect]
     Active Substance: ANTIHEMOPHILIC FACTOR, HUMAN RECOMBINANT
     Indication: Factor VIII deficiency
     Dosage: 2 DF FOR BLEED ON LEFT ELBOW
     Route: 042
  4. KOGENATE FS [Suspect]
     Active Substance: ANTIHEMOPHILIC FACTOR, HUMAN RECOMBINANT
     Indication: Factor VIII deficiency
     Dosage: ONE REGULAR PROPHY DOSE; 9000 UNITS (8100-9900) FOR BLEED ON LEFT ELBOW
     Route: 042

REACTIONS (1)
  - Haemarthrosis [None]
